FAERS Safety Report 12474154 (Version 2)
Quarter: 2016Q4

REPORT INFORMATION
  Report Type: Report from Study
  Country: US (occurrence: US)
  Receive Date: 20160616
  Receipt Date: 20161017
  Transmission Date: 20170207
  Serious: No
  Sender: FDA-Public Use
  Company Number: US-AMGEN-USASL2016076428

PATIENT
  Age: 73 Year
  Sex: Female

DRUGS (2)
  1. ENBREL [Suspect]
     Active Substance: ETANERCEPT
     Indication: PSORIASIS
     Dosage: 50 MG, EVERY WEEK
     Route: 058
     Dates: start: 2015, end: 201606
  2. ENBREL [Suspect]
     Active Substance: ETANERCEPT
     Indication: PSORIATIC ARTHROPATHY

REACTIONS (6)
  - Injection site erythema [Unknown]
  - Injection site pruritus [Recovered/Resolved]
  - Peripheral swelling [Unknown]
  - Injection site pain [Unknown]
  - Erythema [Not Recovered/Not Resolved]
  - Injection site reaction [Recovered/Resolved]
